FAERS Safety Report 19477650 (Version 2)
Quarter: 2021Q4

REPORT INFORMATION
  Report Type: Report from Study
  Country: IE (occurrence: IE)
  Receive Date: 20210630
  Receipt Date: 20211014
  Transmission Date: 20220304
  Serious: Yes (Other)
  Sender: FDA-Public Use
  Company Number: NVSC2021IE046440

PATIENT
  Age: 63 Year
  Sex: Male

DRUGS (1)
  1. GILENYA [Suspect]
     Active Substance: FINGOLIMOD HYDROCHLORIDE
     Indication: Relapsing-remitting multiple sclerosis
     Dosage: 0.5 MG
     Route: 048
     Dates: start: 20130221

REACTIONS (4)
  - Musculoskeletal discomfort [Recovering/Resolving]
  - Blood test abnormal [Unknown]
  - Haemoglobin decreased [Not Recovered/Not Resolved]
  - Hypertension [Unknown]

NARRATIVE: CASE EVENT DATE: 20210201
